FAERS Safety Report 15690780 (Version 11)
Quarter: 2022Q1

REPORT INFORMATION
  Report Type: Report from Study
  Country: CO (occurrence: CO)
  Receive Date: 20181205
  Receipt Date: 20220128
  Transmission Date: 20220423
  Serious: Yes (Life-Threatening, Hospitalization, Other)
  Sender: FDA-Public Use
  Company Number: CO-002147023-PHHY2017CO068427

PATIENT

DRUGS (24)
  1. RUXOLITINIB [Suspect]
     Active Substance: RUXOLITINIB
     Indication: Myelofibrosis
     Dosage: 2 DF, QD (20 MG)
     Route: 048
     Dates: start: 20150605
  2. RUXOLITINIB [Suspect]
     Active Substance: RUXOLITINIB
     Dosage: 1 DF, QD (20 MG)
     Route: 048
     Dates: start: 201605
  3. RUXOLITINIB [Suspect]
     Active Substance: RUXOLITINIB
     Dosage: 2 DF, QD (20 MG) (3 MONTHS AGO)
     Route: 048
  4. RUXOLITINIB [Suspect]
     Active Substance: RUXOLITINIB
     Dosage: 1 DF, QD (DURING FASTING)
     Route: 048
     Dates: start: 20170410
  5. RUXOLITINIB [Suspect]
     Active Substance: RUXOLITINIB
     Dosage: 1 DF, QD (20MG)
     Route: 048
  6. RUXOLITINIB [Suspect]
     Active Substance: RUXOLITINIB
     Dosage: 10 MG, QD (ONCE DAILY)
     Route: 048
     Dates: start: 20171024
  7. RUXOLITINIB [Suspect]
     Active Substance: RUXOLITINIB
     Dosage: 10 MG, QD
     Route: 048
  8. RUXOLITINIB [Suspect]
     Active Substance: RUXOLITINIB
     Dosage: 10 MG, Q12H
     Route: 048
  9. RUXOLITINIB [Suspect]
     Active Substance: RUXOLITINIB
     Dosage: 10 MG, BID (EVERY 12 HOURS)
     Route: 048
  10. CALCITRIOL [Concomitant]
     Active Substance: CALCITRIOL
     Indication: Product used for unknown indication
     Dosage: UNK
     Route: 065
  11. ALLOPURINOL [Concomitant]
     Active Substance: ALLOPURINOL
     Indication: Renal disorder
     Dosage: UNK
     Route: 065
  12. FOLIC ACID [Concomitant]
     Active Substance: FOLIC ACID
     Indication: Product used for unknown indication
     Dosage: UNK
     Route: 048
  13. PROPRANOLOL HYDROCHLORIDE [Concomitant]
     Active Substance: PROPRANOLOL HYDROCHLORIDE
     Indication: Product used for unknown indication
     Dosage: 40 MG, UNK
     Route: 048
  14. ESOMEPRAZOLE [Concomitant]
     Active Substance: ESOMEPRAZOLE
     Indication: Gastritis prophylaxis
     Dosage: 40 MG, UNK
     Route: 048
  15. ESOMEPRAZOLE [Concomitant]
     Active Substance: ESOMEPRAZOLE
     Indication: Detoxification
     Dosage: 20 G, Q12H
     Route: 048
  16. OMEPRAZOLE [Concomitant]
     Active Substance: OMEPRAZOLE
     Indication: Product used for unknown indication
     Dosage: UNK
     Route: 065
  17. SUGASTRIN [Concomitant]
     Indication: Product used for unknown indication
     Dosage: UNK
     Route: 065
  18. SPIRONOLACTONE [Concomitant]
     Active Substance: SPIRONOLACTONE
     Indication: Fluid retention
     Dosage: 100 MG, UNK
     Route: 048
  19. SPIRONOLACTONE [Concomitant]
     Active Substance: SPIRONOLACTONE
     Indication: Detoxification
     Dosage: 25 MG, QD
     Route: 048
  20. FERROUS SULFATE [Concomitant]
     Active Substance: FERROUS SULFATE
     Indication: Product used for unknown indication
     Dosage: UNK
     Route: 048
  21. SUCRALFATE [Concomitant]
     Active Substance: SUCRALFATE
     Indication: Detoxification
     Dosage: 40 MG, Q8H
     Route: 048
  22. SUCRALFATE [Concomitant]
     Active Substance: SUCRALFATE
     Indication: Gastritis prophylaxis
  23. PROPRANOLOL HYDROCHLORIDE [Concomitant]
     Active Substance: PROPRANOLOL HYDROCHLORIDE
     Indication: Detoxification
     Dosage: UNK
     Route: 065
  24. LACTULOSE [Concomitant]
     Active Substance: LACTULOSE
     Indication: Detoxification
     Dosage: UNK
     Route: 065

REACTIONS (25)
  - COVID-19 [Unknown]
  - Decreased immune responsiveness [Unknown]
  - Diarrhoea haemorrhagic [Recovering/Resolving]
  - Dizziness [Unknown]
  - Hypoacusis [Unknown]
  - Varices oesophageal [Recovering/Resolving]
  - Oesophageal varices haemorrhage [Unknown]
  - Fatigue [Unknown]
  - Pyrexia [Unknown]
  - Headache [Unknown]
  - Haemoglobin decreased [Unknown]
  - Hepatic cirrhosis [Unknown]
  - Blood creatinine increased [Unknown]
  - Blood iron decreased [Unknown]
  - Drug ineffective [Unknown]
  - Weight decreased [Unknown]
  - Pain [Unknown]
  - Renal pain [Recovering/Resolving]
  - Pancreatitis [Recovering/Resolving]
  - Inappropriate schedule of product administration [Unknown]
  - Platelet count decreased [Recovering/Resolving]
  - Renal failure [Unknown]
  - Renal disorder [Unknown]
  - Blood uric acid increased [Unknown]
  - Haematemesis [Recovering/Resolving]

NARRATIVE: CASE EVENT DATE: 20190201
